FAERS Safety Report 9474147 (Version 3)
Quarter: 2013Q4

REPORT INFORMATION
  Report Type: Spontaneous
  Country: US (occurrence: None)
  Receive Date: 20130820
  Receipt Date: 20131018
  Transmission Date: 20140711
  Serious: Yes (Hospitalization)
  Sender: FDA-Public Use
  Company Number: 2013SGN00481

PATIENT
  Age: 60 Year
  Sex: Male

DRUGS (5)
  1. ADCETRIS [Suspect]
     Indication: HODGKIN^S DISEASE
     Dates: start: 20130712, end: 20130712
  2. ASPIRIN (ACETYLSALICYLIC ACID) [Concomitant]
  3. CARVEDILOL (CARVEDILOL) [Concomitant]
  4. INSULIN (INSULIN HUMAN) [Concomitant]
  5. TRAMADOL (TRAMADOL HYDROCHLORIDE) [Concomitant]

REACTIONS (2)
  - Pancreatitis [None]
  - Liver disorder [None]
